FAERS Safety Report 9417015 (Version 2)
Quarter: 2013Q3

REPORT INFORMATION
  Report Type: Spontaneous
  Country: DE (occurrence: DE)
  Receive Date: 20130724
  Receipt Date: 20130731
  Transmission Date: 20140515
  Serious: Yes (Hospitalization)
  Sender: FDA-Public Use
  Company Number: DE-TEVA-419269GER

PATIENT
  Sex: 0

DRUGS (4)
  1. COPAXONE [Suspect]
     Dates: end: 201307
  2. OXAZEPAM [Interacting]
  3. QUETIAPINE [Interacting]
  4. DOXEPIN [Interacting]

REACTIONS (8)
  - Type IV hypersensitivity reaction [Recovered/Resolved]
  - Flushing [Recovered/Resolved]
  - Feeling hot [Recovered/Resolved]
  - Chest discomfort [Recovered/Resolved]
  - Throat tightness [Recovered/Resolved]
  - Dyspnoea [Recovered/Resolved]
  - Panic reaction [Recovered/Resolved]
  - Drug interaction [Recovered/Resolved]
